FAERS Safety Report 4778796-9 (Version None)
Quarter: 2005Q3

REPORT INFORMATION
  Report Type: 
  Country: None (occurrence: None)
  Receive Date: 20050922
  Receipt Date: 20050907
  Transmission Date: 20060218
  Serious: Yes (Hospitalization)
  Sender: FDA-Public Use
  Company Number: MAG-2005-0000385

PATIENT
  Age: 12 Year
  Sex: Female

DRUGS (4)
  1. THEOPHYLLINE [Suspect]
     Indication: ASTHMA
     Dosage: 600 MG, DAILY, ORAL
     Route: 048
     Dates: start: 20001229, end: 20050817
  2. THEO-DUR [Concomitant]
  3. MEQUITAZINE (MEQUITAZINE) [Concomitant]
  4. BECLOMETHASONE DIPROPIONATE [Concomitant]

REACTIONS (2)
  - ABDOMINAL PAIN [None]
  - RHABDOMYOLYSIS [None]
